FAERS Safety Report 4542001-9 (Version None)
Quarter: 2004Q4

REPORT INFORMATION
  Report Type: 
  Country: None (occurrence: None)
  Receive Date: 20041227
  Receipt Date: 20041222
  Transmission Date: 20050328
  Serious: Yes (Other)
  Sender: FDA-Public Use
  Company Number: 2003148448US

PATIENT
  Age: 60 Year
  Sex: Female
  Weight: 58.96 kg

DRUGS (5)
  1. BEXTRA [Suspect]
     Indication: POST PROCEDURAL PAIN
     Dosage: 20 MG (20 MG, QD), OPHTHALMIC
     Route: 047
     Dates: start: 20030126, end: 20030202
  2. CONJUGATED ESTROGENS [Concomitant]
  3. HYZAAR (HYDROCHLORTHIAZIDE, LOSARTAN POTASSIUM) [Concomitant]
  4. THYROID TAB [Concomitant]
  5. OLOPATADINE HYDROCHLORIDE (OLOPATADINE HYDROCHLORIDE) [Concomitant]

REACTIONS (4)
  - DRUG HYPERSENSITIVITY [None]
  - DYSURIA [None]
  - HYPERSENSITIVITY [None]
  - INSOMNIA [None]
